FAERS Safety Report 10273730 (Version 1)
Quarter: 2014Q2

REPORT INFORMATION
  Report Type: Spontaneous
  Country: US (occurrence: None)
  Receive Date: 20140630
  Receipt Date: 20140630
  Transmission Date: 20141212
  Serious: Yes (Hospitalization)
  Sender: FDA-Public Use
  Company Number: None

PATIENT
  Age: 78 Year
  Sex: Male
  Weight: 94.4 kg

DRUGS (2)
  1. LEVOFLOXACIN [Suspect]
     Indication: PNEUMONIA
     Route: 048
     Dates: start: 20140522, end: 20140522
  2. AZITHROMYCIN [Suspect]
     Route: 048
     Dates: start: 20140521, end: 20140524

REACTIONS (2)
  - Diarrhoea [None]
  - Headache [None]
